FAERS Safety Report 5415758-2 (Version None)
Quarter: 2007Q3

REPORT INFORMATION
  Report Type: 
  Country: None (occurrence: None)
  Receive Date: 20070718
  Receipt Date: 20070306
  Transmission Date: 20080115
  Serious: Yes (Hospitalization, Other)
  Sender: FDA-Public Use
  Company Number: 2007004546

PATIENT
  Age: 61 Year
  Sex: Male
  Weight: 104.3 kg

DRUGS (2)
  1. CELEBREX [Suspect]
     Indication: ARTHRITIS
     Dosage: 400 MG (200 MG, 2 IN 1 D)
     Dates: start: 19990601
  2. CELEBREX [Suspect]
     Indication: INJURY
     Dosage: 400 MG (200 MG, 2 IN 1 D)
     Dates: start: 19990601

REACTIONS (1)
  - MYOCARDIAL INFARCTION [None]
